FAERS Safety Report 10241402 (Version 3)
Quarter: 2014Q3

REPORT INFORMATION
  Report Type: Report from Study
  Country: US (occurrence: US)
  Receive Date: 20140617
  Receipt Date: 20140704
  Transmission Date: 20150326
  Serious: Yes (Hospitalization)
  Sender: FDA-Public Use
  Company Number: US-JNJFOC-20140605318

PATIENT
  Age: 61 Year
  Sex: Female
  Weight: 115.67 kg

DRUGS (2)
  1. USTEKINUMAB [Suspect]
     Active Substance: USTEKINUMAB
     Indication: PSORIASIS
     Route: 058
     Dates: start: 200912
  2. USTEKINUMAB [Suspect]
     Active Substance: USTEKINUMAB
     Indication: PSORIASIS
     Route: 058
     Dates: start: 20131104

REACTIONS (2)
  - Lumbar radiculopathy [Recovered/Resolved]
  - Wound infection bacterial [Recovered/Resolved]

NARRATIVE: CASE EVENT DATE: 20131106
